FAERS Safety Report 12375576 (Version 2)
Quarter: 2016Q2

REPORT INFORMATION
  Report Type: Spontaneous
  Country: FR (occurrence: FR)
  Receive Date: 20160517
  Receipt Date: 20160517
  Transmission Date: 20160815
  Serious: Yes (Hospitalization)
  Sender: FDA-Public Use
  Company Number: FR-SA-2016SA094379

PATIENT
  Age: 79 Year
  Sex: Male

DRUGS (23)
  1. LASILIX [Suspect]
     Active Substance: FUROSEMIDE
     Route: 048
     Dates: start: 20160421, end: 20160423
  2. LEVOFLOXACIN. [Suspect]
     Active Substance: LEVOFLOXACIN
     Indication: LUNG DISORDER
     Route: 042
     Dates: start: 20160406, end: 20160413
  3. LAROXYL [Concomitant]
     Active Substance: AMITRIPTYLINE
  4. TAZOBACTAM/PIPERACILLIN [Suspect]
     Active Substance: PIPERACILLIN SODIUM\TAZOBACTAM SODIUM
     Indication: LUNG DISORDER
     Route: 042
     Dates: start: 20160413, end: 20160425
  5. AMOXICILLIN/CLAVULANIC ACID SANDOZ [Suspect]
     Active Substance: AMOXICILLIN\CLAVULANIC ACID
     Indication: LUNG DISORDER
     Route: 042
     Dates: start: 20160405, end: 20160406
  6. ZOPHREN [Suspect]
     Active Substance: ONDANSETRON
     Indication: NAUSEA
     Route: 048
     Dates: start: 20160407, end: 20160425
  7. ATENOLOL. [Concomitant]
     Active Substance: ATENOLOL
  8. TAZOBACTAM/PIPERACILLIN [Suspect]
     Active Substance: PIPERACILLIN SODIUM\TAZOBACTAM SODIUM
     Indication: LUNG DISORDER
     Route: 042
     Dates: start: 20160402, end: 20160404
  9. XATRAL [Concomitant]
     Active Substance: ALFUZOSIN
     Dosage: 10MG
  10. LASILIX [Suspect]
     Active Substance: FUROSEMIDE
     Route: 048
     Dates: start: 20160405, end: 20160408
  11. ESOMEPRAZOLE [Concomitant]
     Active Substance: ESOMEPRAZOLE
  12. MOVICOL [Suspect]
     Active Substance: POLYETHYLENE GLYCOL 3350\POTASSIUM CHLORIDE\SODIUM BICARBONATE\SODIUM CHLORIDE
     Indication: CONSTIPATION
     Route: 048
     Dates: start: 20160413, end: 20160425
  13. PARACETAMOL [Concomitant]
     Active Substance: ACETAMINOPHEN
  14. LOVENOX [Suspect]
     Active Substance: ENOXAPARIN SODIUM
     Indication: THROMBOSIS PROPHYLAXIS
     Route: 058
     Dates: start: 20160401, end: 20160425
  15. NEFOPAM [Suspect]
     Active Substance: NEFOPAM
     Indication: PAIN
     Route: 042
     Dates: start: 20160409, end: 20160413
  16. TANGANIL [Concomitant]
     Active Substance: ACETYLLEUCINE
  17. BETASERC [Concomitant]
     Active Substance: BETAHISTINE
  18. ROVAMYCINE [Suspect]
     Active Substance: SPIRAMYCIN
     Indication: LUNG DISORDER
     Dosage: DOSE:1.5 MILLIUNIT(S)
     Route: 042
     Dates: start: 20160413, end: 20160425
  19. OXYNORMORO [Suspect]
     Active Substance: OXYCODONE
     Indication: PAIN
     Route: 048
     Dates: start: 20160413, end: 20160425
  20. METRONIDAZOLE. [Suspect]
     Active Substance: METRONIDAZOLE
     Indication: LUNG DISORDER
     Route: 042
     Dates: start: 20160408, end: 20160411
  21. FLUOXETINE [Concomitant]
     Active Substance: FLUOXETINE HYDROCHLORIDE
  22. MICARDIS [Concomitant]
     Active Substance: TELMISARTAN
  23. LYRICA [Concomitant]
     Active Substance: PREGABALIN
     Dosage: 50 MG : 2 GEL MORNING AND EVENING

REACTIONS (5)
  - Stevens-Johnson syndrome [Not Recovered/Not Resolved]
  - Constipation [None]
  - Renal failure [None]
  - Pain [None]
  - Nausea [None]

NARRATIVE: CASE EVENT DATE: 20160425
